FAERS Safety Report 9605302 (Version 1)
Quarter: 2013Q4

REPORT INFORMATION
  Report Type: Spontaneous
  Country: US (occurrence: US)
  Receive Date: 20131008
  Receipt Date: 20131008
  Transmission Date: 20140711
  Serious: Yes (Hospitalization, Other)
  Sender: FDA-Public Use
  Company Number: US-GILEAD-2013-0084822

PATIENT
  Sex: Male

DRUGS (2)
  1. LETAIRIS [Suspect]
     Indication: PULMONARY HYPERTENSION
     Dates: start: 20130927, end: 20130929
  2. OXYGEN [Concomitant]
     Indication: PULMONARY ARTERIAL HYPERTENSION
     Dates: start: 20130101, end: 20130930

REACTIONS (2)
  - Disease progression [Unknown]
  - Pulmonary oedema [Unknown]
